FAERS Safety Report 14939781 (Version 1)
Quarter: 2018Q2

REPORT INFORMATION
  Report Type: Spontaneous
  Country: US (occurrence: US)
  Receive Date: 20180525
  Receipt Date: 20180525
  Transmission Date: 20180711
  Serious: No
  Sender: FDA-Public Use
  Company Number: US-PFIZER INC-2018164000

PATIENT
  Age: 21 Month
  Sex: Male

DRUGS (1)
  1. EUCRISA [Suspect]
     Active Substance: CRISABOROLE
     Indication: DERMATITIS ATOPIC
     Dosage: UNK; APPLY TO AFFECTED AREA ONCE TO TWICE A DAY
     Route: 061

REACTIONS (2)
  - Drug administered to patient of inappropriate age [Unknown]
  - Drug effect incomplete [Unknown]
